FAERS Safety Report 25427374 (Version 1)
Quarter: 2025Q2

REPORT INFORMATION
  Report Type: Spontaneous
  Country: BR (occurrence: BR)
  Receive Date: 20250612
  Receipt Date: 20250612
  Transmission Date: 20250716
  Serious: Yes (Other)
  Sender: ROCHE
  Company Number: BR-ROCHE-10000306645

PATIENT
  Age: 68 Year
  Sex: Male

DRUGS (12)
  1. ATEZOLIZUMAB [Suspect]
     Active Substance: ATEZOLIZUMAB
     Indication: Hepatocellular carcinoma
     Route: 065
     Dates: start: 20240116
  2. ATEZOLIZUMAB [Suspect]
     Active Substance: ATEZOLIZUMAB
     Route: 065
     Dates: start: 20240224
  3. ATEZOLIZUMAB [Suspect]
     Active Substance: ATEZOLIZUMAB
     Route: 065
     Dates: start: 20250602
  4. BEVACIZUMAB [Suspect]
     Active Substance: BEVACIZUMAB
     Indication: Hepatocellular carcinoma
     Route: 065
     Dates: start: 20240116
  5. BEVACIZUMAB [Suspect]
     Active Substance: BEVACIZUMAB
     Route: 065
     Dates: start: 20240224
  6. BEVACIZUMAB [Suspect]
     Active Substance: BEVACIZUMAB
     Route: 065
     Dates: start: 20250602
  7. GLICLAZIDE [Concomitant]
     Active Substance: GLICLAZIDE
  8. OLMESARTAN [Concomitant]
     Active Substance: OLMESARTAN
  9. HYDROCHLOROTHIAZIDE [Concomitant]
     Active Substance: HYDROCHLOROTHIAZIDE
  10. AMLODIPINE [Concomitant]
     Active Substance: AMLODIPINE BESYLATE
  11. ALLOPURINOL [Concomitant]
     Active Substance: ALLOPURINOL
  12. LINAGLIPTIN [Concomitant]
     Active Substance: LINAGLIPTIN

REACTIONS (1)
  - Metastasis [Unknown]
